FAERS Safety Report 4463803-3 (Version None)
Quarter: 2004Q4

REPORT INFORMATION
  Report Type: 
  Country: None (occurrence: None)
  Receive Date: 20041001
  Receipt Date: 20040920
  Transmission Date: 20050328
  Serious: Yes (Other)
  Sender: FDA-Public Use
  Company Number: 200417165US

PATIENT
  Age: 26 Year
  Sex: Female

DRUGS (2)
  1. KETEK [Suspect]
     Indication: BRONCHITIS
     Dosage: DOSE: UNK
     Dates: start: 20040919, end: 20040919
  2. ALBUTEROL [Concomitant]
     Indication: BRONCHITIS
     Dosage: DOSE: UNK
     Dates: start: 20040919

REACTIONS (4)
  - CONVULSION [None]
  - HEART RATE INCREASED [None]
  - PULMONARY OEDEMA [None]
  - TREMOR [None]
